FAERS Safety Report 12716937 (Version 1)
Quarter: 2016Q3

REPORT INFORMATION
  Report Type: Spontaneous
  Country: CN (occurrence: CN)
  Receive Date: 20160906
  Receipt Date: 20160906
  Transmission Date: 20161109
  Serious: Yes (Hospitalization)
  Sender: FDA-Public Use
  Company Number: CN-HERITAGE PHARMACEUTICALS-2016HTG00216

PATIENT
  Age: 61 Year
  Sex: Male

DRUGS (2)
  1. VALSARTAN. [Suspect]
     Active Substance: VALSARTAN
     Indication: HYPERTENSION
     Dosage: 80 MG, 1X/DAY
     Route: 065
     Dates: start: 2013, end: 201305
  2. METHIMAZOLE. [Suspect]
     Active Substance: METHIMAZOLE
     Indication: HYPERTHYROIDISM
     Dosage: 10 MG, 2X/DAY
     Route: 065
     Dates: start: 20130416, end: 201305

REACTIONS (4)
  - Renal injury [Recovered/Resolved]
  - Hepatotoxicity [Recovered/Resolved]
  - Cholestatic liver injury [Recovered/Resolved]
  - Hypersensitivity [Recovered/Resolved]

NARRATIVE: CASE EVENT DATE: 201305
